FAERS Safety Report 7657520-6 (Version None)
Quarter: 2011Q3

REPORT INFORMATION
  Report Type: 
  Country: None (occurrence: None)
  Receive Date: 20110804
  Receipt Date: 20110727
  Transmission Date: 20111222
  Serious: Yes (Hospitalization, Other)
  Sender: FDA-Public Use
  Company Number: PHEH2009US01397

PATIENT
  Sex: Male

DRUGS (34)
  1. AREDIA [Suspect]
     Indication: MULTIPLE MYELOMA
     Dosage: 90 MG, QMO
     Dates: start: 19971001, end: 20080601
  2. DOXIL [Concomitant]
  3. PROCHLORPERAZINE [Concomitant]
  4. MESNA [Concomitant]
  5. ZOMETA [Suspect]
     Indication: MULTIPLE MYELOMA
     Dosage: UNK
     Dates: start: 20010101, end: 20050101
  6. VELCADE [Concomitant]
  7. CHEMOTHERAPEUTICS NOS [Concomitant]
  8. HYZAAR [Suspect]
  9. DOLASETRON [Concomitant]
  10. DECADRON [Concomitant]
  11. AVAPRO [Concomitant]
  12. PERIOGARD [Concomitant]
  13. BACTRIM [Concomitant]
  14. CLEOCIN HYDROCHLORIDE [Concomitant]
  15. LYRICA [Concomitant]
  16. DEXAMETHASONE [Concomitant]
  17. REVLIMID [Concomitant]
  18. ZITHROMAX [Concomitant]
  19. PRILOSEC [Concomitant]
     Dosage: 20 MG, UNK
  20. NEUPOGEN [Concomitant]
     Dosage: 10 MG, UNK
  21. OXYCODONE HCL [Concomitant]
  22. ALPRAZOLAM [Concomitant]
  23. AVALIDE [Concomitant]
     Dosage: 150 MG, UNK
  24. VIAGRA [Concomitant]
  25. XANAX [Concomitant]
  26. ALLEGRA [Concomitant]
  27. BETAMETHASONE [Concomitant]
  28. ROCEPHIN [Concomitant]
  29. BORTEZOMIB [Concomitant]
  30. ACETAMINOPHEN [Concomitant]
  31. NASACORT [Concomitant]
  32. HYDROCHLOROTHIAZIDE [Concomitant]
  33. OSCAL [Concomitant]
  34. VIOXX [Concomitant]

REACTIONS (77)
  - OSTEONECROSIS OF JAW [None]
  - PAIN IN JAW [None]
  - IMPAIRED HEALING [None]
  - HAEMANGIOMA OF LIVER [None]
  - TOOTH LOSS [None]
  - FIBROUS HISTIOCYTOMA [None]
  - SKIN HYPERPIGMENTATION [None]
  - MACULAR DEGENERATION [None]
  - INJURY [None]
  - PANCREATIC MASS [None]
  - NEUROPATHY PERIPHERAL [None]
  - NAUSEA [None]
  - ORAL HERPES [None]
  - PROTEIN URINE [None]
  - IMMUNOSUPPRESSION [None]
  - SKIN LESION [None]
  - BODY TINEA [None]
  - HYPERKERATOSIS [None]
  - OSTEOARTHRITIS [None]
  - DIPLOPIA [None]
  - SWELLING FACE [None]
  - DEEP VEIN THROMBOSIS [None]
  - PAIN [None]
  - LUMBAR SPINAL STENOSIS [None]
  - BLOOD PRESSURE INCREASED [None]
  - MASTICATION DISORDER [None]
  - ANXIETY [None]
  - MULTIPLE MYELOMA [None]
  - LYMPHADENOPATHY [None]
  - ULCER [None]
  - SINUSITIS [None]
  - TONGUE ULCERATION [None]
  - CATARACT [None]
  - SPINAL COMPRESSION FRACTURE [None]
  - DIVERTICULUM [None]
  - NEPHROLITHIASIS [None]
  - HAEMORRHAGE [None]
  - RASH ERYTHEMATOUS [None]
  - RASH PRURITIC [None]
  - ONYCHOMYCOSIS [None]
  - PYREXIA [None]
  - BLISTER INFECTED [None]
  - VISION BLURRED [None]
  - DEFORMITY [None]
  - BODY TEMPERATURE INCREASED [None]
  - SEXUAL DYSFUNCTION [None]
  - OSTEOPENIA [None]
  - LEUKOPENIA [None]
  - RENAL FAILURE ACUTE [None]
  - BONE LESION [None]
  - INTERVERTEBRAL DISC COMPRESSION [None]
  - HYPOPHAGIA [None]
  - DEVICE RELATED INFECTION [None]
  - PRODUCTIVE COUGH [None]
  - MUSCULOSKELETAL PAIN [None]
  - VOMITING [None]
  - OSTEOPOROSIS [None]
  - SPINAL OSTEOARTHRITIS [None]
  - INTERVERTEBRAL DISC PROTRUSION [None]
  - BRONCHITIS [None]
  - PURULENT DISCHARGE [None]
  - BONE DISORDER [None]
  - SENSORY LOSS [None]
  - PANCREATIC CYST [None]
  - HAEMATURIA [None]
  - ANAEMIA [None]
  - ARTERIOSCLEROSIS CORONARY ARTERY [None]
  - HYPOKALAEMIA [None]
  - LIGAMENT SPRAIN [None]
  - ORTHOSTATIC HYPOTENSION [None]
  - DECREASED APPETITE [None]
  - UPPER RESPIRATORY TRACT INFECTION [None]
  - GASTRITIS [None]
  - RASH [None]
  - INFLUENZA [None]
  - PNEUMONIA [None]
  - ROTATOR CUFF SYNDROME [None]
